FAERS Safety Report 20080552 (Version 2)
Quarter: 2021Q4

REPORT INFORMATION
  Report Type: Spontaneous
  Country: PT (occurrence: PT)
  Receive Date: 20211117
  Receipt Date: 20211206
  Transmission Date: 20220303
  Serious: Yes (Hospitalization, Disabling, Other)
  Sender: FDA-Public Use
  Company Number: PT-MYLANLABS-2021M1078114

PATIENT
  Age: 73 Year
  Sex: Male

DRUGS (2)
  1. SPIRONOLACTONE [Suspect]
     Active Substance: SPIRONOLACTONE
     Indication: Diabetes mellitus
     Dosage: UNK
  2. SPIRONOLACTONE [Suspect]
     Active Substance: SPIRONOLACTONE
     Indication: Diabetic nephropathy

REACTIONS (5)
  - Hyperkalaemia [Recovering/Resolving]
  - Paraplegia [Recovering/Resolving]
  - Paralysis [Recovering/Resolving]
  - Bundle branch block left [Recovering/Resolving]
  - Off label use [Unknown]
